FAERS Safety Report 13458217 (Version 1)
Quarter: 2017Q2

REPORT INFORMATION
  Report Type: Spontaneous
  Country: US (occurrence: US)
  Receive Date: 20170419
  Receipt Date: 20170419
  Transmission Date: 20170830
  Serious: Yes (Other)
  Sender: FDA-Public Use
  Company Number: US-NOVOPROD-540771

PATIENT
  Age: 65 Year
  Sex: Male

DRUGS (1)
  1. NOVOLOG [Suspect]
     Active Substance: INSULIN ASPART
     Indication: PRODUCT USED FOR UNKNOWN INDICATION
     Dosage: UNK
     Route: 058

REACTIONS (6)
  - Myocardial infarction [Unknown]
  - Diabetic retinopathy [Unknown]
  - Laser therapy [Unknown]
  - Blood cholesterol abnormal [Unknown]
  - Visual field defect [Unknown]
  - Renal transplant [Unknown]
